FAERS Safety Report 21256968 (Version 1)
Quarter: 2022Q3

REPORT INFORMATION
  Report Type: Spontaneous
  Country: FR (occurrence: FR)
  Receive Date: 20220826
  Receipt Date: 20220826
  Transmission Date: 20221026
  Serious: Yes (Other)
  Sender: FDA-Public Use
  Company Number: FR-NOVOPROD-950942

PATIENT
  Sex: Female

DRUGS (1)
  1. GLUCAGEN [Suspect]
     Active Substance: GLUCAGON HYDROCHLORIDE
     Indication: Magnetic resonance imaging abdominal
     Dosage: 1 MG/ML

REACTIONS (3)
  - Syncope [Unknown]
  - Malaise [Recovered/Resolved]
  - Ocular discomfort [Unknown]
